FAERS Safety Report 15752043 (Version 1)
Quarter: 2018Q4

REPORT INFORMATION
  Report Type: Report from Study
  Country: US (occurrence: US)
  Receive Date: 20181221
  Receipt Date: 20181221
  Transmission Date: 20190205
  Serious: Yes (Hospitalization)
  Sender: FDA-Public Use
  Company Number: US-ACTELION-A-US2018-183536

PATIENT
  Age: 66 Year
  Sex: Female
  Weight: 117.91 kg

DRUGS (2)
  1. ADEMPAS [Concomitant]
     Active Substance: RIOCIGUAT
     Dosage: UNK UNK, QD
     Route: 048
  2. OPSUMIT [Suspect]
     Active Substance: MACITENTAN
     Indication: PULMONARY ARTERIAL HYPERTENSION
     Dosage: 10 MG, QD
     Route: 048

REACTIONS (8)
  - Dyspnoea [Unknown]
  - Epistaxis [Unknown]
  - Peripheral swelling [Unknown]
  - Fluid retention [Unknown]
  - Fatigue [Unknown]
  - Oropharyngeal pain [Unknown]
  - Productive cough [Unknown]
  - Dizziness [Unknown]
